FAERS Safety Report 24657725 (Version 1)
Quarter: 2024Q4

REPORT INFORMATION
  Report Type: Spontaneous
  Country: US (occurrence: US)
  Receive Date: 20241125
  Receipt Date: 20241125
  Transmission Date: 20250115
  Serious: No
  Sender: AMGEN
  Company Number: US-AMGEN-USASP2024230177

PATIENT
  Age: 59 Year
  Sex: Female

DRUGS (2)
  1. PREDNISONE [Suspect]
     Active Substance: PREDNISONE
     Indication: Lupus nephritis
     Dosage: 60 MILLIGRAM, QD
     Route: 065
  2. MYCOPHENOLIC ACID [Concomitant]
     Active Substance: MYCOPHENOLIC ACID
     Indication: Lupus nephritis
     Dosage: UNK

REACTIONS (3)
  - Focal segmental glomerulosclerosis [Unknown]
  - Gastrointestinal disorder [Unknown]
  - Off label use [Unknown]
